FAERS Safety Report 5750814-0 (Version None)
Quarter: 2008Q2

REPORT INFORMATION
  Report Type: 
  Country: None (occurrence: None)
  Receive Date: 20080528
  Receipt Date: 20080527
  Transmission Date: 20081010
  Serious: Yes (Hospitalization)
  Sender: FDA-Public Use
  Company Number: A0729554A

PATIENT
  Age: 67 Year
  Sex: Male

DRUGS (4)
  1. ALLI [Suspect]
     Dates: start: 20080201, end: 20080301
  2. RANITIDINE [Concomitant]
     Dosage: 150MG TWICE PER DAY
  3. FUROSEMIDE [Concomitant]
     Dosage: 20MG TWICE PER DAY
  4. LEVOTHYROXINE SODIUM [Concomitant]

REACTIONS (1)
  - KNEE ARTHROPLASTY [None]
